FAERS Safety Report 5152302-1 (Version None)
Quarter: 2006Q4

REPORT INFORMATION
  Report Type: 
  Country: None (occurrence: None)
  Receive Date: 20061116
  Receipt Date: 20061107
  Transmission Date: 20070319
  Serious: Yes (Other)
  Sender: FDA-Public Use
  Company Number: US-AVENTIS-200619172US

PATIENT
  Age: 53 Year
  Sex: Female

DRUGS (5)
  1. FEXOFENADINE [Suspect]
     Indication: MULTIPLE ALLERGIES
     Route: 048
     Dates: start: 20061011, end: 20061023
  2. FENTANYL [Concomitant]
     Indication: AGGRESSION
     Dosage: DOSE: UNK
  3. PERCOCET                           /00867901/ [Concomitant]
     Indication: AGGRESSION
     Dosage: DOSE: UNK
     Route: 048
  4. ESTRACE [Concomitant]
  5. PLAVIX [Concomitant]
     Dosage: DOSE: UNK

REACTIONS (9)
  - INFECTION [None]
  - NAUSEA [None]
  - NEURALGIA [None]
  - PAIN OF SKIN [None]
  - POLLAKIURIA [None]
  - RASH [None]
  - SCAR [None]
  - SKIN HAEMORRHAGE [None]
  - SKIN LESION [None]
